FAERS Safety Report 7450834-4 (Version None)
Quarter: 2011Q2

REPORT INFORMATION
  Report Type: 
  Country: None (occurrence: None)
  Receive Date: 20110422
  Receipt Date: 20110412
  Transmission Date: 20111010
  Serious: Yes (Death, Other)
  Sender: FDA-Public Use
  Company Number: WAES 1008FRA00018

PATIENT
  Age: 54 Year
  Sex: Male

DRUGS (14)
  1. IVERMECTIN [Concomitant]
  2. OMEPRAZOLE [Concomitant]
  3. PYRAZINAMIDE [Concomitant]
  4. LAMIVUDINE [Suspect]
     Indication: HIV INFECTION
     Dosage: 300 MG DAILY, PO
     Route: 048
     Dates: start: 20100610
  5. LEUCOVORIN CALCIUM [Concomitant]
  6. ISENTRESS [Suspect]
     Indication: HIV INFECTION
     Dosage: 800 MG DAILY, PO
     Route: 048
     Dates: start: 20100530, end: 20100831
  7. ISONIAZID [Suspect]
     Indication: TUBERCULOSIS
     Dosage: 400 MG DAILY, PO
     Route: 048
     Dates: start: 20100522, end: 20100810
  8. CIPROFLOXACIN [Concomitant]
  9. RIFAMPIN [Suspect]
     Indication: TUBERCULOSIS
     Dosage: 600 MG DAILY, PO
     Route: 048
     Dates: start: 20100522, end: 20100810
  10. SULFAMETHOXAZOLE TRIMETHOPRIM [Concomitant]
  11. TENOFOVIR DISOPROXIL FUMARATE [Suspect]
     Indication: HIV INFECTION
     Dosage: 300 MG DAILY, PO
     Route: 048
     Dates: start: 20100530
  12. AZITHROMYCIN [Concomitant]
  13. PYRIDOXINE [Concomitant]
  14. ACYCLOVIR [Concomitant]

REACTIONS (4)
  - MYOCARDIAL INFARCTION [None]
  - DRUG ERUPTION [None]
  - NEUTROPENIA [None]
  - LEUKOPENIA [None]
